FAERS Safety Report 18721061 (Version 5)
Quarter: 2021Q2

REPORT INFORMATION
  Report Type: Report from Study
  Country: US (occurrence: US)
  Receive Date: 20210108
  Receipt Date: 20210405
  Transmission Date: 20210717
  Serious: Yes (Other)
  Sender: FDA-Public Use
  Company Number: NVSC2021US001193

PATIENT
  Sex: Female

DRUGS (5)
  1. KESIMPTA [Suspect]
     Active Substance: OFATUMUMAB
     Indication: MULTIPLE SCLEROSIS
     Dosage: 20 MG, QMO
     Route: 058
  2. KESIMPTA [Suspect]
     Active Substance: OFATUMUMAB
     Indication: CLINICALLY ISOLATED SYNDROME
  3. ADVIL [Concomitant]
     Active Substance: IBUPROFEN
     Indication: PRODUCT USED FOR UNKNOWN INDICATION
     Dosage: UNK
     Route: 065
  4. BENADRYL [Concomitant]
     Active Substance: DIPHENHYDRAMINE HYDROCHLORIDE
     Indication: PRODUCT USED FOR UNKNOWN INDICATION
     Dosage: UNK
     Route: 065
  5. KESIMPTA [Suspect]
     Active Substance: OFATUMUMAB
     Indication: DISEASE PROGRESSION

REACTIONS (11)
  - Nausea [Recovered/Resolved]
  - Dry eye [Unknown]
  - Adrenal disorder [Recovered/Resolved]
  - Dry mouth [Unknown]
  - Thyroid disorder [Unknown]
  - Fatigue [Recovered/Resolved]
  - Dry skin [Unknown]
  - Psychiatric symptom [Recovered/Resolved]
  - Pain in extremity [Recovered/Resolved]
  - Conjunctival haemorrhage [Unknown]
  - Lip dry [Unknown]
